FAERS Safety Report 7014493-7 (Version None)
Quarter: 2010Q3

REPORT INFORMATION
  Report Type: 
  Country: None (occurrence: None)
  Receive Date: 20100927
  Receipt Date: 20100922
  Transmission Date: 20110219
  Serious: Yes (Death, Life-Threatening, Hospitalization, Disabling)
  Sender: FDA-Public Use
  Company Number: GB-CELGENEUS-167-21880-10041287

PATIENT
  Sex: Male
  Weight: 139 kg

DRUGS (8)
  1. REVLIMID [Suspect]
     Indication: MULTIPLE MYELOMA
     Route: 048
     Dates: start: 20100323, end: 20100407
  2. DEXAMETHASONE [Suspect]
     Indication: MULTIPLE MYELOMA
     Route: 048
     Dates: start: 20100408, end: 20100411
  3. PRILOSEC [Concomitant]
     Route: 048
     Dates: start: 20100331
  4. ZOFRAN [Concomitant]
     Indication: PROPHYLAXIS
     Route: 048
     Dates: start: 20100108, end: 20100408
  5. CLINDAMYCIN [Concomitant]
     Route: 048
     Dates: start: 20100331, end: 20100412
  6. ALLOPURINOL [Concomitant]
     Indication: PROPHYLAXIS
     Route: 048
     Dates: start: 20100108
  7. BONEFOS [Concomitant]
     Indication: PRODUCT USED FOR UNKNOWN INDICATION
     Route: 048
     Dates: start: 20100108
  8. ACYCLOVIR SODIUM [Concomitant]
     Indication: ANTIVIRAL PROPHYLAXIS
     Route: 048
     Dates: start: 20100108, end: 20100417

REACTIONS (4)
  - DISSEMINATED INTRAVASCULAR COAGULATION [None]
  - LEUKAEMIA PLASMACYTIC [None]
  - SUBDURAL HAEMATOMA [None]
  - THROMBOCYTOPENIA [None]
